FAERS Safety Report 5002224-1 (Version None)
Quarter: 2006Q2

REPORT INFORMATION
  Report Type: 
  Country: None (occurrence: None)
  Receive Date: 20060510
  Receipt Date: 20060426
  Transmission Date: 20061013
  Serious: Yes (Life-Threatening, Disabling)
  Sender: FDA-Public Use
  Company Number: ABX06-06-0174

PATIENT
  Age: 74 Year
  Sex: Female
  Weight: 65.318 kg

DRUGS (8)
  1. ABRAXANE FOR INJECTABLE SUSPENSION (PACLITAXEL PROTEIN-BOUND PARTICLES [Suspect]
     Indication: BREAST CANCER METASTATIC
     Dosage: ABRAXANE DELAYED 1 WEEK(147 MG Q WK-3 ON 1 OFF) INTRAVENOUS DRIP
     Route: 041
     Dates: start: 20050607
  2. HERCEPTIN [Suspect]
     Indication: BREAST CANCER METASTATIC
     Dosage: DOSING WK 1 136 MG, QK D 156 MG, WK 3 265 MG, (Q WK 3 WKS ON 1 OFF) INTRAVENOUS
     Route: 042
     Dates: start: 20050607, end: 20060327
  3. NEUPOGEN [Concomitant]
  4. PERCOCET [Concomitant]
  5. ZOFRAN [Concomitant]
  6. DECADRON SRC [Concomitant]
  7. IMMODIUM (LOPERAMIDE HYDROCHLORIDE) [Concomitant]
  8. PRILOSEC [Concomitant]

REACTIONS (3)
  - CARDIOMYOPATHY [None]
  - DYSPNOEA [None]
  - GENERALISED OEDEMA [None]
